FAERS Safety Report 5642975-9 (Version None)
Quarter: 2008Q1

REPORT INFORMATION
  Report Type: 
  Country: None (occurrence: None)
  Receive Date: 20080228
  Receipt Date: 20080220
  Transmission Date: 20080703
  Serious: Yes (Life-Threatening, Disabling, Other)
  Sender: FDA-Public Use
  Company Number: A0707176A

PATIENT
  Age: 40 Year
  Sex: Male
  Weight: 72.7 kg

DRUGS (2)
  1. SEREVENT [Suspect]
     Indication: ASTHMA
     Dosage: 1PUFF TWICE PER DAY
     Route: 055
     Dates: start: 20080118, end: 20080118
  2. ALBUTEROL [Concomitant]

REACTIONS (3)
  - MYOCARDIAL INFARCTION [None]
  - PALPITATIONS [None]
  - PHARMACEUTICAL PRODUCT COMPLAINT [None]
